FAERS Safety Report 26065584 (Version 1)
Quarter: 2025Q4

REPORT INFORMATION
  Report Type: Spontaneous
  Country: US (occurrence: US)
  Receive Date: 20251119
  Receipt Date: 20251119
  Transmission Date: 20260118
  Serious: No
  Sender: GRIFOLS
  Company Number: US-IGSA-BIG0039539

PATIENT
  Age: 60 Year
  Sex: Female

DRUGS (2)
  1. HUMAN IMMUNOGLOBULIN G [Suspect]
     Active Substance: HUMAN IMMUNOGLOBULIN G
     Indication: Hypogammaglobulinaemia
     Dosage: UNK, UNKNOWN
     Route: 042
  2. HUMAN IMMUNOGLOBULIN G [Suspect]
     Active Substance: HUMAN IMMUNOGLOBULIN G
     Indication: Hypogammaglobulinaemia
     Dosage: 40 GRAM, Q.WK.
     Route: 058

REACTIONS (6)
  - Fatigue [Recovering/Resolving]
  - Pyrexia [Recovering/Resolving]
  - Drug intolerance [Recovering/Resolving]
  - Urinary tract infection [Recovering/Resolving]
  - Mouth ulceration [Recovering/Resolving]
  - Abnormal loss of weight [Recovering/Resolving]
